FAERS Safety Report 19349726 (Version 1)
Quarter: 2021Q2

REPORT INFORMATION
  Report Type: Spontaneous
  Country: US (occurrence: US)
  Receive Date: 20210528
  Receipt Date: 20210528
  Transmission Date: 20210717
  Serious: Yes (Disabling, Other)
  Sender: FDA-Public Use
  Company Number: None

PATIENT
  Age: 45 Year
  Sex: Female

DRUGS (1)
  1. GLATIRAMER PFS 40MG/ML [Suspect]
     Active Substance: GLATIRAMER ACETATE
     Indication: MULTIPLE SCLEROSIS
     Dosage: OTHER
     Route: 058
     Dates: start: 202001, end: 202104

REACTIONS (3)
  - COVID-19 [None]
  - Device issue [None]
  - Skin disorder [None]

NARRATIVE: CASE EVENT DATE: 20200102
